FAERS Safety Report 14418033 (Version 2)
Quarter: 2018Q1

REPORT INFORMATION
  Report Type: Report from Study
  Country: FR (occurrence: FR)
  Receive Date: 20180122
  Receipt Date: 20180129
  Transmission Date: 20180509
  Serious: Yes (Hospitalization)
  Sender: FDA-Public Use
  Company Number: FR-BRISTOL-MYERS SQUIBB COMPANY-BMS-2018-004283

PATIENT
  Age: 72 Year
  Sex: Male
  Weight: 118 kg

DRUGS (5)
  1. AMOXICILLINE                       /00249601/ [Concomitant]
     Active Substance: AMOXICILLIN
     Indication: URINARY TRACT INFECTION
     Dosage: UNK
     Route: 048
  2. DUROGESIC [Concomitant]
     Active Substance: FENTANYL
     Indication: PAIN
     Dosage: UNK
     Route: 048
     Dates: start: 20180111
  3. PLITICAN [Concomitant]
     Active Substance: ALIZAPRIDE HYDROCHLORIDE
     Indication: VOMITING
     Dosage: UNK
     Route: 048
  4. NIVOLUMAB [Suspect]
     Active Substance: NIVOLUMAB
     Indication: SQUAMOUS CELL CARCINOMA OF HEAD AND NECK
     Dosage: 330 MG, UNK
     Route: 042
     Dates: start: 20170911, end: 20171214
  5. ACTISKENAN [Concomitant]
     Active Substance: MORPHINE SULFATE
     Indication: PAIN
     Dosage: UNK
     Route: 048
     Dates: start: 20180111

REACTIONS (1)
  - General physical health deterioration [Not Recovered/Not Resolved]

NARRATIVE: CASE EVENT DATE: 20180111
